FAERS Safety Report 22078122 (Version 1)
Quarter: 2023Q1

REPORT INFORMATION
  Report Type: Report from Study
  Country: CA (occurrence: CA)
  Receive Date: 20230309
  Receipt Date: 20230309
  Transmission Date: 20230418
  Serious: Yes (Hospitalization)
  Sender: FDA-Public Use
  Company Number: CA-MYLANLABS-2023M1016478

PATIENT
  Sex: Female
  Weight: 107.4 kg

DRUGS (1)
  1. OGIVRI [Suspect]
     Active Substance: TRASTUZUMAB-DKST
     Indication: Breast cancer metastatic
     Dosage: 651 MILLIGRAM, Q3W
     Route: 042
     Dates: start: 20221006, end: 20230119

REACTIONS (2)
  - Blood calcium increased [Unknown]
  - Rash [Not Recovered/Not Resolved]
